FAERS Safety Report 18973553 (Version 1)
Quarter: 2021Q1

REPORT INFORMATION
  Report Type: Spontaneous
  Country: US (occurrence: US)
  Receive Date: 20210305
  Receipt Date: 20210305
  Transmission Date: 20210420
  Serious: Yes (Other)
  Sender: FDA-Public Use
  Company Number: US-PFIZER INC-2021230134

PATIENT
  Age: 85 Year
  Sex: Female
  Weight: 76.2 kg

DRUGS (5)
  1. LYRICA CR [Suspect]
     Active Substance: PREGABALIN
     Indication: POST HERPETIC NEURALGIA
     Dosage: 165 MG, ONCE DAILY
     Route: 048
     Dates: start: 2018
  2. LYRICA CR [Suspect]
     Active Substance: PREGABALIN
     Indication: NEURALGIA
     Dosage: 165 MG, TWICE DAILY
     Route: 048
  3. LYRICA CR [Suspect]
     Active Substance: PREGABALIN
     Dosage: 330 MG, ONCE DAILY
     Route: 048
  4. LYRICA CR [Suspect]
     Active Substance: PREGABALIN
     Dosage: UNK
     Route: 048
     Dates: end: 20210225
  5. LYRICA CR [Suspect]
     Active Substance: PREGABALIN
     Dosage: UNK
     Route: 048
     Dates: end: 202009

REACTIONS (3)
  - Off label use [Unknown]
  - Product prescribing issue [Unknown]
  - Chronic kidney disease [Unknown]

NARRATIVE: CASE EVENT DATE: 2020
